FAERS Safety Report 13345405 (Version 1)
Quarter: 2017Q1

REPORT INFORMATION
  Report Type: Spontaneous
  Country: FR (occurrence: FR)
  Receive Date: 20170317
  Receipt Date: 20170317
  Transmission Date: 20170428
  Serious: Yes (Life-Threatening, Hospitalization, Disabling)
  Sender: FDA-Public Use
  Company Number: FR-ACCORD-049187

PATIENT
  Age: 41 Year
  Sex: Female

DRUGS (1)
  1. DOCETAXEL ACCORD [Suspect]
     Active Substance: DOCETAXEL
     Indication: BREAST CANCER
     Dosage: PATIENT RECEIVED 2ND CYCLE
     Route: 042
     Dates: start: 20151008

REACTIONS (6)
  - Neutropenic colitis [Recovered/Resolved with Sequelae]
  - Febrile bone marrow aplasia [Unknown]
  - Sepsis [Unknown]
  - Decreased appetite [Unknown]
  - Neutropenia [Recovered/Resolved]
  - Thrombocytopenia [Unknown]

NARRATIVE: CASE EVENT DATE: 20151017
